FAERS Safety Report 5150607-1 (Version None)
Quarter: 2006Q4

REPORT INFORMATION
  Report Type: 
  Country: None (occurrence: None)
  Receive Date: 20061114
  Receipt Date: 20061016
  Transmission Date: 20070319
  Serious: Yes (Life-Threatening)
  Sender: FDA-Public Use
  Company Number: JP-BRISTOL-MYERS SQUIBB COMPANY-13575105

PATIENT
  Age: 26 Year
  Sex: Female

DRUGS (8)
  1. RESLIN [Suspect]
     Route: 048
     Dates: start: 20060825
  2. SOLANAX [Suspect]
     Indication: ANXIETY
     Dosage: 24/7/06-30/7/06 .800 MG QD,31/7/06-20/8/06 .400 MG, 21/8/06-CONT .800 MG 10/7-23/7/06 1.200 MG
     Dates: start: 20060724
  3. ZOLOFT [Suspect]
     Indication: DEPRESSION
     Dosage: 10/7/06-17/7/06 50 MG QD, 18/7/06-23/7/06 75 MG QD, 24/7/06-20/8/06 100 MG QD
     Route: 048
     Dates: start: 20060710, end: 20060820
  4. DEPAS [Concomitant]
     Dates: start: 20060710, end: 20060820
  5. MYSLEE [Concomitant]
     Dates: start: 20060724, end: 20060730
  6. NITRAZEPAM [Concomitant]
     Dates: start: 20060731
  7. FAMOTIDINE [Concomitant]
     Dates: start: 20060724, end: 20060820
  8. NITRAZEPAM [Concomitant]

REACTIONS (1)
  - SELF INJURIOUS BEHAVIOUR [None]
